FAERS Safety Report 5041479-4 (Version None)
Quarter: 2006Q2

REPORT INFORMATION
  Report Type: 
  Country: None (occurrence: None)
  Receive Date: 20060627
  Receipt Date: 20060612
  Transmission Date: 20061013
  Serious: Yes (Hospitalization)
  Sender: FDA-Public Use
  Company Number: FEI2006-0538

PATIENT
  Age: 34 Year
  Sex: Female
  Weight: 78.4723 kg

DRUGS (3)
  1. PARAGARD T280A (INTRAUTERINE CONTRACEPTIVES) (UTERINE) [Suspect]
     Indication: CONTRACEPTION
     Dosage: INTRA-UTERINE
     Route: 015
     Dates: start: 20051129, end: 20060301
  2. PRENATAL VITAMINS [Concomitant]
  3. UNSPECIFIED DIET PILLS [Concomitant]

REACTIONS (12)
  - DRUG EXPOSURE DURING PREGNANCY [None]
  - EXOMPHALOS [None]
  - FATIGUE [None]
  - FOETAL GROWTH RETARDATION [None]
  - INTRA-UTERINE DEATH [None]
  - METRORRHAGIA [None]
  - NAUSEA [None]
  - NEONATAL DISORDER [None]
  - PLACENTAL TRANSFUSION SYNDROME [None]
  - PREGNANCY WITH CONTRACEPTIVE DEVICE [None]
  - SYNCOPE [None]
  - TWIN PREGNANCY [None]
